FAERS Safety Report 9428167 (Version 1)
Quarter: 2013Q3

REPORT INFORMATION
  Report Type: Spontaneous
  Country: US (occurrence: US)
  Receive Date: 20130730
  Receipt Date: 20130730
  Transmission Date: 20140515
  Serious: No
  Sender: FDA-Public Use
  Company Number: US-ABBOTT-12P-163-1001898-00

PATIENT
  Sex: Male
  Weight: 93.07 kg

DRUGS (3)
  1. NIASPAN (COATED) [Suspect]
     Indication: BLOOD CHOLESTEROL INCREASED
     Dates: start: 2010
  2. UNSPECIFIED INGREDIENT [Suspect]
     Indication: HYPERTENSION
     Dates: start: 1995, end: 2010
  3. UNKNOWN MEDICATION [Concomitant]
     Indication: PRODUCT USED FOR UNKNOWN INDICATION

REACTIONS (1)
  - Blood pressure decreased [Recovered/Resolved]
